FAERS Safety Report 7081728-4 (Version None)
Quarter: 2010Q4

REPORT INFORMATION
  Report Type: 
  Country: None (occurrence: None)
  Receive Date: 20101103
  Receipt Date: 20101019
  Transmission Date: 20110411
  Serious: Yes (Other)
  Sender: FDA-Public Use
  Company Number: FR-GENENTECH-308583

PATIENT
  Sex: Female
  Weight: 73 kg

DRUGS (4)
  1. XOLAIR [Suspect]
     Indication: PRODUCT USED FOR UNKNOWN INDICATION
     Dosage: 150 MG, 1/MONTH
     Dates: start: 20080530, end: 20100922
  2. SERETIDE DISKUS [Concomitant]
     Indication: PRODUCT USED FOR UNKNOWN INDICATION
  3. ALLERGODIL [Concomitant]
     Indication: PRODUCT USED FOR UNKNOWN INDICATION
  4. ESCITALOPRAM [Concomitant]
     Indication: PRODUCT USED FOR UNKNOWN INDICATION

REACTIONS (3)
  - BLOOD PRESSURE INCREASED [None]
  - DIZZINESS [None]
  - INCORRECT ROUTE OF DRUG ADMINISTRATION [None]
